FAERS Safety Report 8236416-5 (Version None)
Quarter: 2012Q1

REPORT INFORMATION
  Report Type: 
  Country: None (occurrence: None)
  Receive Date: 20120327
  Receipt Date: 20120321
  Transmission Date: 20120608
  Serious: No
  Sender: FDA-Public Use
  Company Number: US-PFIZER INC-2012074686

PATIENT
  Age: 63 Year
  Sex: Female
  Weight: 64.853 kg

DRUGS (1)
  1. METAXALONE [Suspect]
     Indication: MUSCLE SPASMS
     Dosage: 800 MG, ONE EVERY 6 HOURS
     Dates: start: 20120316, end: 20120317

REACTIONS (3)
  - VOMITING [None]
  - NAUSEA [None]
  - DRUG INEFFECTIVE [None]
